FAERS Safety Report 5397315-X (Version None)
Quarter: 2007Q3

REPORT INFORMATION
  Report Type: 
  Country: None (occurrence: None)
  Receive Date: 20070723
  Receipt Date: 20070713
  Transmission Date: 20080115
  Serious: Yes (Hospitalization)
  Sender: FDA-Public Use
  Company Number: 2007BI014907

PATIENT
  Age: 33 Year
  Sex: Female
  Weight: 58 kg

DRUGS (1)
  1. NATALIZUMAB (NATALIZUMAB) [Suspect]
     Indication: MULTIPLE SCLEROSIS
     Dosage: 300 MG; QM; IV
     Route: 042
     Dates: start: 20070703

REACTIONS (2)
  - DYSARTHRIA [None]
  - FACIAL NERVE DISORDER [None]
